FAERS Safety Report 8200621-4 (Version None)
Quarter: 2012Q1

REPORT INFORMATION
  Report Type: 
  Country: None (occurrence: None)
  Receive Date: 20120306
  Receipt Date: 20110127
  Transmission Date: 20120608
  Serious: Yes (Life-Threatening, Hospitalization)
  Sender: FDA-Public Use
  Company Number: GER/UKI/11/0017281

PATIENT
  Age: 87 Year
  Sex: Male

DRUGS (12)
  1. ASPIRIN [Suspect]
     Indication: MYOCARDIAL ISCHAEMIA
     Dosage: 75 MG, 1 IN 1 D, ORAL
     Route: 048
     Dates: end: 20101031
  2. FLOXACILLIN SODIUM [Concomitant]
  3. AUGMENTIN '125' [Concomitant]
  4. CARBAMAZEPINE [Concomitant]
  5. ACETAMINOPHEN [Concomitant]
  6. NITROGLYCERIN [Concomitant]
  7. FONDAPARINUX SODIUM [Suspect]
     Indication: ACUTE MYOCARDIAL INFARCTION
     Dosage: 2.5 MG, 1 IN 1 D, SUBCUTANEOUS
     Route: 058
     Dates: start: 20101026, end: 20101029
  8. PIPERACILLIN AND TAZOBACTAM [Concomitant]
  9. TAMSULOSIN HCL [Concomitant]
  10. AMLODIPINE [Concomitant]
  11. CLOPIDOGREL [Suspect]
     Indication: ACUTE MYOCARDIAL INFARCTION
     Dosage: 75 MG, 1 IN 1 D, ORAL
     Route: 048
     Dates: start: 20101026, end: 20101029
  12. LEVOTHYROXINE SODIUM [Concomitant]

REACTIONS (2)
  - MELAENA [None]
  - HAEMATEMESIS [None]
